FAERS Safety Report 12459721 (Version 8)
Quarter: 2018Q3

REPORT INFORMATION
  Report Type: Spontaneous
  Country: CA (occurrence: CA)
  Receive Date: 20160613
  Receipt Date: 20180917
  Transmission Date: 20181010
  Serious: Yes (Other)
  Sender: FDA-Public Use
  Company Number: CA-ROCHE-1773344

PATIENT
  Age: 37 Year
  Sex: Male
  Weight: 73 kg

DRUGS (12)
  1. XOLAIR [Suspect]
     Active Substance: OMALIZUMAB
     Route: 058
     Dates: start: 20160518
  2. XOLAIR [Suspect]
     Active Substance: OMALIZUMAB
     Route: 058
     Dates: start: 20160615
  3. XOLAIR [Suspect]
     Active Substance: OMALIZUMAB
     Route: 058
     Dates: start: 20170822
  4. VENTOLIN [Concomitant]
     Active Substance: ALBUTEROL SULFATE
     Indication: PRODUCT USED FOR UNKNOWN INDICATION
     Dosage: 2 PUFFS, QID
     Route: 065
  5. XOLAIR [Suspect]
     Active Substance: OMALIZUMAB
     Route: 058
     Dates: start: 20160601
  6. XOLAIR [Suspect]
     Active Substance: OMALIZUMAB
     Route: 058
     Dates: start: 20141209
  7. XOLAIR [Suspect]
     Active Substance: OMALIZUMAB
     Route: 058
     Dates: start: 20161213
  8. XOLAIR [Suspect]
     Active Substance: OMALIZUMAB
     Route: 058
     Dates: start: 20161129
  9. DEPO?MEDROL [Concomitant]
     Active Substance: METHYLPREDNISOLONE ACETATE
     Indication: PRODUCT USED FOR UNKNOWN INDICATION
     Dosage: 80 MG
     Route: 030
  10. XOLAIR [Suspect]
     Active Substance: OMALIZUMAB
     Indication: ASTHMA
     Route: 058
     Dates: start: 20140109
  11. XOLAIR [Suspect]
     Active Substance: OMALIZUMAB
     Route: 058
     Dates: start: 20170124
  12. VITAMIN D3 [Concomitant]
     Active Substance: CHOLECALCIFEROL
     Indication: PRODUCT USED FOR UNKNOWN INDICATION
     Dosage: 100 MG, QD
     Route: 065

REACTIONS (28)
  - Lower respiratory tract infection [Unknown]
  - Upper limb fracture [Recovering/Resolving]
  - Asthma [Unknown]
  - Injury [Recovering/Resolving]
  - Constipation [Recovering/Resolving]
  - Road traffic accident [Unknown]
  - Pain [Unknown]
  - Bronchitis [Unknown]
  - Body temperature increased [Recovering/Resolving]
  - Rash [Unknown]
  - Influenza [Unknown]
  - Lung infection [Recovering/Resolving]
  - Hypoventilation [Unknown]
  - Productive cough [Unknown]
  - Rhonchi [Unknown]
  - Malaise [Unknown]
  - Oropharyngeal pain [Unknown]
  - Chest discomfort [Not Recovered/Not Resolved]
  - Abdominal discomfort [Recovering/Resolving]
  - Wheezing [Unknown]
  - Pyrexia [Recovered/Resolved]
  - Quality of life decreased [Unknown]
  - Pain in extremity [Unknown]
  - Dry skin [Unknown]
  - Rash pruritic [Unknown]
  - Weight decreased [Unknown]
  - Alopecia [Unknown]
  - Body temperature decreased [Unknown]

NARRATIVE: CASE EVENT DATE: 20140201
